FAERS Safety Report 6376193-6 (Version None)
Quarter: 2009Q3

REPORT INFORMATION
  Report Type: 
  Country: None (occurrence: None)
  Receive Date: 20090918
  Receipt Date: 20090902
  Transmission Date: 20100115
  Serious: Yes (Hospitalization)
  Sender: FDA-Public Use
  Company Number: 20097047

PATIENT
  Age: 39 Year
  Sex: Male

DRUGS (1)
  1. BACLOFEN [Suspect]
     Indication: MUSCLE SPASTICITY
     Dosage: 200-240 MCG, DAILY, INTRATHECAL-S
     Route: 037
     Dates: start: 20070330

REACTIONS (2)
  - ARTHRITIS [None]
  - MUSCLE SPASMS [None]
